FAERS Safety Report 23310814 (Version 1)
Quarter: 2023Q4

REPORT INFORMATION
  Report Type: Spontaneous
  Country: TR (occurrence: TR)
  Receive Date: 20231218
  Receipt Date: 20231218
  Transmission Date: 20240109
  Serious: Yes (Hospitalization, Other)
  Sender: FDA-Public Use
  Company Number: TR-ALKEM LABORATORIES LIMITED-TR-ALKEM-2022-13797

PATIENT
  Age: 3 Year
  Sex: Female

DRUGS (3)
  1. MYCOPHENOLATE MOFETIL [Suspect]
     Active Substance: MYCOPHENOLATE MOFETIL
     Indication: Product used for unknown indication
     Dosage: UNK
     Route: 065
  2. CHOLESTYRAMINE [Suspect]
     Active Substance: CHOLESTYRAMINE
     Indication: Progressive familial intrahepatic cholestasis
     Dosage: UNK
     Route: 065
  3. RIFAMPIN [Suspect]
     Active Substance: RIFAMPIN
     Indication: Progressive familial intrahepatic cholestasis
     Dosage: UNK
     Route: 065

REACTIONS (3)
  - Condition aggravated [Recovered/Resolved]
  - Diarrhoea [Recovered/Resolved]
  - Drug ineffective [Unknown]
